FAERS Safety Report 11714770 (Version 1)
Quarter: 2015Q4

REPORT INFORMATION
  Report Type: Report from Study
  Country: US (occurrence: US)
  Receive Date: 20151109
  Receipt Date: 20151109
  Transmission Date: 20160304
  Serious: Yes (Hospitalization)
  Sender: FDA-Public Use
  Company Number: PHEH2015US022959

PATIENT
  Sex: Male

DRUGS (1)
  1. PROMACTA [Suspect]
     Active Substance: ELTROMBOPAG OLAMINE
     Indication: PLATELET COUNT ABNORMAL
     Dosage: 50 MG, BID (TWICE A DAY)
     Route: 048
     Dates: start: 20150904

REACTIONS (2)
  - Malaise [Unknown]
  - Staphylococcal infection [Unknown]
